FAERS Safety Report 5652289-9 (Version None)
Quarter: 2008Q1

REPORT INFORMATION
  Report Type: 
  Country: None (occurrence: None)
  Receive Date: 20080305
  Receipt Date: 20080303
  Transmission Date: 20080703
  Serious: Yes (Death)
  Sender: FDA-Public Use
  Company Number: BR-BOEHRINGER INGELHEIM GMBH, GERMANY-2008-BP-03111BR

PATIENT
  Age: 67 Year
  Sex: Male

DRUGS (2)
  1. MICARDIS [Suspect]
     Indication: HYPERTENSION
     Route: 048
     Dates: start: 20071101, end: 20080101
  2. NON-SPECIFIED SUBSTANCE [Concomitant]

REACTIONS (2)
  - CARDIOPULMONARY FAILURE [None]
  - MYOCARDIAL INFARCTION [None]
